FAERS Safety Report 6776764-9 (Version None)
Quarter: 2010Q2

REPORT INFORMATION
  Report Type: 
  Country: None (occurrence: None)
  Receive Date: 20100617
  Receipt Date: 20100617
  Transmission Date: 20101027
  Serious: Yes (Hospitalization)
  Sender: FDA-Public Use
  Company Number: None

PATIENT
  Age: 84 Year

DRUGS (10)
  1. VANCOMYCIN [Suspect]
     Indication: INFECTION
     Dates: start: 20100222, end: 20100228
  2. ZOSYN [Concomitant]
  3. SIMVASTATIN [Concomitant]
  4. PANTOPRAZOLE [Concomitant]
  5. PERCOCET [Concomitant]
  6. LEVOTHYROXINE SODIUM [Concomitant]
  7. ENALAPRL [Concomitant]
  8. DOCUSATE [Concomitant]
  9. BUDESONIDE [Concomitant]
  10. DUONEB [Concomitant]

REACTIONS (2)
  - ANURIA [None]
  - NEPHROPATHY TOXIC [None]
